FAERS Safety Report 5618348-1 (Version None)
Quarter: 2008Q1

REPORT INFORMATION
  Report Type: 
  Country: None (occurrence: None)
  Receive Date: 20080114
  Receipt Date: 20070327
  Transmission Date: 20080703
  Serious: Yes (Other)
  Sender: FDA-Public Use
  Company Number: A03200702385

PATIENT
  Age: 74 Year
  Sex: Male

DRUGS (3)
  1. PLAVIX [Suspect]
     Indication: CORONARY ARTERY BYPASS
     Dosage: 75 MG, QD, ORAL
     Route: 048
     Dates: start: 20020101
  2. ASPIRIN [Suspect]
     Indication: CORONARY ARTERY BYPASS
     Dosage: 325 MG, QD, ORAL
     Route: 048
     Dates: start: 20020101
  3. BIBR 1048 - DABIGATRAN ETEXILATE [Suspect]
     Dates: start: 20060831, end: 20070121

REACTIONS (2)
  - EPISTAXIS [None]
  - VASCULAR GRAFT OCCLUSION [None]
